FAERS Safety Report 9485826 (Version 1)
Quarter: 2013Q3

REPORT INFORMATION
  Report Type: Spontaneous
  Country: US (occurrence: None)
  Receive Date: 20130816
  Receipt Date: 20130816
  Transmission Date: 20140515
  Serious: Yes (Other)
  Sender: FDA-Public Use
  Company Number: 2013SA075904

PATIENT
  Age: 24 Year
  Sex: Male

DRUGS (1)
  1. AUBAGIO [Suspect]
     Indication: MULTIPLE SCLEROSIS
     Route: 048
     Dates: start: 201307

REACTIONS (7)
  - VIIth nerve paralysis [None]
  - Muscle tightness [None]
  - Headache [None]
  - Fatigue [None]
  - Fatigue [None]
  - Pyrexia [None]
  - Progressive multiple sclerosis [None]
